FAERS Safety Report 5054381-9 (Version None)
Quarter: 2006Q2

REPORT INFORMATION
  Report Type: 
  Country: None (occurrence: None)
  Receive Date: 20060616
  Receipt Date: 20060411
  Transmission Date: 20061013
  Serious: No
  Sender: FDA-Public Use
  Company Number: 222596

PATIENT
  Sex: Female

DRUGS (2)
  1. AVASTIN [Suspect]
     Indication: RENAL CELL CARCINOMA STAGE UNSPECIFIED
     Dates: start: 20051001
  2. PAIN MEDICATION (ANALGESIC NOS) [Concomitant]

REACTIONS (2)
  - BLISTER [None]
  - SKIN DISORDER [None]
